FAERS Safety Report 6304535-6 (Version None)
Quarter: 2009Q3

REPORT INFORMATION
  Report Type: 
  Country: None (occurrence: None)
  Receive Date: 20090811
  Receipt Date: 20090728
  Transmission Date: 20100115
  Serious: Yes (Hospitalization)
  Sender: FDA-Public Use
  Company Number: AT-NOVOPROD-289603

PATIENT
  Sex: Male

DRUGS (4)
  1. MIXTARD HUMAN 70/30 [Suspect]
     Indication: TYPE 1 DIABETES MELLITUS
     Dosage: 18-20+12-15 IU
  2. NEXIUM [Concomitant]
     Dates: start: 20090624
  3. GLUCOPHAGE [Concomitant]
     Dosage: 1000 MG, BID
     Dates: start: 20090624
  4. FUROSEMID                          /00032601/ [Concomitant]
     Dosage: 40 MG, QD
     Dates: start: 20090624

REACTIONS (5)
  - BLOOD GLUCOSE INCREASED [None]
  - DIABETIC KETOACIDOSIS [None]
  - GANGRENE [None]
  - JOINT SWELLING [None]
  - SUBCUTANEOUS ABSCESS [None]
